FAERS Safety Report 9517365 (Version 1)
Quarter: 2013Q3

REPORT INFORMATION
  Report Type: Spontaneous
  Country: US (occurrence: US)
  Receive Date: 20130911
  Receipt Date: 20130911
  Transmission Date: 20140515
  Serious: Yes (Other)
  Sender: FDA-Public Use
  Company Number: US-UCBSA-097200

PATIENT
  Sex: 0

DRUGS (1)
  1. CIMZIA [Suspect]
     Indication: CROHN^S DISEASE
     Dosage: UNKNOWN DOSE, FREQUENCY: 2 WEEKS

REACTIONS (9)
  - Surgery [Unknown]
  - Gastrointestinal infection [Unknown]
  - Crohn^s disease [Unknown]
  - Asthenia [Unknown]
  - Myalgia [Unknown]
  - Abdominal pain lower [Unknown]
  - Drug intolerance [Unknown]
  - Infection [Unknown]
  - Fatigue [Unknown]
